FAERS Safety Report 18816026 (Version 1)
Quarter: 2021Q1

REPORT INFORMATION
  Report Type: Spontaneous
  Country: US (occurrence: US)
  Receive Date: 20210201
  Receipt Date: 20210201
  Transmission Date: 20210419
  Serious: Yes (Other)
  Sender: FDA-Public Use
  Company Number: None

PATIENT
  Age: 46 Year
  Sex: Female
  Weight: 99 kg

DRUGS (4)
  1. VITAMIN D [Concomitant]
     Active Substance: VITAMIN D NOS
  2. LOSARTAN 50 MG [Concomitant]
     Active Substance: LOSARTAN
  3. KOI DELTA 8 GUMMIES BLUE?RAZZ FLAVORED KOICBD.COM [Suspect]
     Active Substance: .DELTA.8-TETRAHYDROCANNABINOL\HERBALS
     Indication: STRESS
  4. DAILY VITAMIN [Concomitant]
     Active Substance: VITAMINS

REACTIONS (4)
  - Dizziness [None]
  - Visual impairment [None]
  - Dyspnoea [None]
  - Near death experience [None]

NARRATIVE: CASE EVENT DATE: 20210130
